FAERS Safety Report 6609221-0 (Version None)
Quarter: 2010Q1

REPORT INFORMATION
  Report Type: 
  Country: None (occurrence: None)
  Receive Date: 20100224
  Receipt Date: 20100209
  Transmission Date: 20100710
  Serious: Yes (Other)
  Sender: FDA-Public Use
  Company Number: 2010S1000964

PATIENT
  Sex: Female
  Weight: 73.4827 kg

DRUGS (10)
  1. PHOSPHOSODA           FLAVOR NOT SPECIFED [Suspect]
     Indication: COLONOSCOPY
     Dosage: PO
     Route: 048
     Dates: start: 20080303
  2. NEXIUM [Concomitant]
  3. ASPIRIN [Concomitant]
  4. CALCIUM [Concomitant]
  5. CLARINEX [Concomitant]
  6. MULTI-VITAMIN [Concomitant]
  7. TOPROL-XL [Concomitant]
  8. AMLODIPINE BESYLATE [Concomitant]
  9. ALBUTEROL [Concomitant]
  10. DIOVAN HCT [Concomitant]

REACTIONS (2)
  - RENAL FAILURE ACUTE [None]
  - RENAL FAILURE CHRONIC [None]
